FAERS Safety Report 5616103-X (Version None)
Quarter: 2008Q1

REPORT INFORMATION
  Report Type: 
  Country: None (occurrence: None)
  Receive Date: 20080201
  Receipt Date: 20080125
  Transmission Date: 20080703
  Serious: Yes (Other)
  Sender: FDA-Public Use
  Company Number: 2008002301

PATIENT
  Age: 19 Year
  Sex: Male
  Weight: 77.1115 kg

DRUGS (1)
  1. EMETROL (GLUCOSE, FRUCTOSE, PHOSPHORIC ACID) [Suspect]
     Indication: INFLUENZA LIKE ILLNESS
     Dosage: ONE TEASPOON ONCE, ORAL
     Route: 048
     Dates: start: 20080124, end: 20080124

REACTIONS (1)
  - CONVULSION [None]
